FAERS Safety Report 11306852 (Version 1)
Quarter: 2015Q3

REPORT INFORMATION
  Report Type: Spontaneous
  Country: US (occurrence: US)
  Receive Date: 20150723
  Receipt Date: 20150723
  Transmission Date: 20151125
  Serious: No
  Sender: FDA-Public Use
  Company Number: US-ASTELLAS-2015US015298

PATIENT
  Age: 70 Year
  Sex: Female

DRUGS (1)
  1. MYRBETRIQ [Suspect]
     Active Substance: MIRABEGRON
     Indication: URINARY INCONTINENCE
     Route: 065
     Dates: start: 201504, end: 201504

REACTIONS (4)
  - Nervousness [Unknown]
  - Heart rate increased [Unknown]
  - Intentional product use issue [Unknown]
  - Feeling jittery [Unknown]

NARRATIVE: CASE EVENT DATE: 201504
